FAERS Safety Report 6918509-5 (Version None)
Quarter: 2010Q3

REPORT INFORMATION
  Report Type: 
  Country: None (occurrence: None)
  Receive Date: 20100722
  Receipt Date: 20090810
  Transmission Date: 20110219
  Serious: Yes (Hospitalization)
  Sender: FDA-Public Use
  Company Number: DSU-2009-01631

PATIENT
  Age: 45 Year
  Sex: Female

DRUGS (2)
  1. WELCHOL [Suspect]
     Indication: PRODUCT USED FOR UNKNOWN INDICATION
     Dosage: PER ORAL
     Route: 048
  2. GLUCOPHAGE (METFORMIN) (METFORMIN) [Concomitant]

REACTIONS (1)
  - PANCREATITIS [None]
